FAERS Safety Report 10207846 (Version 1)
Quarter: 2014Q2

REPORT INFORMATION
  Report Type: Spontaneous
  Country: US (occurrence: US)
  Receive Date: 20140530
  Receipt Date: 20140530
  Transmission Date: 20141212
  Serious: No
  Sender: FDA-Public Use
  Company Number: US-GLAXOSMITHKLINE-A1062528A

PATIENT
  Age: 49 Year
  Sex: Male

DRUGS (2)
  1. VENTOLIN [Suspect]
     Indication: ASTHMA
     Dosage: 2PUFF THREE TIMES PER DAY
     Route: 055
     Dates: start: 20100522
  2. NO CONCURRENT MEDICATION [Concomitant]

REACTIONS (7)
  - Influenza [Recovering/Resolving]
  - Dyspnoea [Unknown]
  - Inhalation therapy [Unknown]
  - Wrong technique in drug usage process [Unknown]
  - Emergency care examination [Unknown]
  - Drug dose omission [Unknown]
  - Overdose [Unknown]
